FAERS Safety Report 10865614 (Version 1)
Quarter: 2015Q1

REPORT INFORMATION
  Report Type: Other
  Country: FR (occurrence: FR)
  Receive Date: 20150224
  Receipt Date: 20150224
  Transmission Date: 20150721
  Serious: Yes (Hospitalization, Other)
  Sender: FDA-Public Use
  Company Number: FR-ACTELION-A-CH2015-113191

PATIENT
  Age: 8 Year
  Sex: Female

DRUGS (2)
  1. EPOPROSTENOL [Concomitant]
     Active Substance: EPOPROSTENOL
  2. TRACLEER [Suspect]
     Active Substance: BOSENTAN\BOSENTAN MONOHYDRATE
     Indication: PULMONARY ARTERIAL HYPERTENSION
     Route: 048

REACTIONS (8)
  - Dyspnoea [Recovered/Resolved]
  - Systemic-pulmonary artery shunt [Recovered/Resolved]
  - Lung transplant [Recovered/Resolved]
  - Pulmonary haemorrhage [Recovered/Resolved]
  - Shunt occlusion [Recovered/Resolved]
  - Thoracotomy [Recovered/Resolved]
  - Haemoptysis [Recovered/Resolved]
  - Arteriovenous fistula aneurysm [Recovered/Resolved]
